FAERS Safety Report 9135697 (Version 2)
Quarter: 2013Q1

REPORT INFORMATION
  Report Type: Report from Study
  Country: US (occurrence: US)
  Receive Date: 20130304
  Receipt Date: 20130319
  Transmission Date: 20140127
  Serious: Yes (Other)
  Sender: FDA-Public Use
  Company Number: US-BAYER-2013-023378

PATIENT
  Age: 62 Year
  Sex: Male

DRUGS (3)
  1. STIVARGA [Suspect]
     Indication: RECTAL CANCER
     Dosage: 160 MG, 4 TABLETS DAILY
     Route: 048
     Dates: start: 20130207
  2. ANTIHYPERTENSIVES [Concomitant]
     Indication: HYPERTENSION
  3. DERMATOLOGICALS [Concomitant]

REACTIONS (8)
  - Blood urine present [Not Recovered/Not Resolved]
  - International normalised ratio increased [Recovered/Resolved]
  - Fatigue [Not Recovered/Not Resolved]
  - Neuropathy peripheral [Not Recovered/Not Resolved]
  - Decreased appetite [Not Recovered/Not Resolved]
  - Epistaxis [Recovered/Resolved]
  - Dysphonia [Not Recovered/Not Resolved]
  - Oral pain [Recovering/Resolving]
